FAERS Safety Report 18292523 (Version 7)
Quarter: 2022Q1

REPORT INFORMATION
  Report Type: Other
  Country: CA (occurrence: CA)
  Receive Date: 20200922
  Receipt Date: 20220127
  Transmission Date: 20220424
  Serious: Yes (Hospitalization, Other)
  Sender: FDA-Public Use
  Company Number: CA-CELLTRION INC.-2020CA026101

PATIENT

DRUGS (22)
  1. RITUXIMAB [Suspect]
     Active Substance: RITUXIMAB
     Indication: Rheumatoid arthritis
     Dosage: UNK
     Route: 042
  2. RITUXIMAB [Suspect]
     Active Substance: RITUXIMAB
     Dosage: 1000.0 MILLIGRAM, 1 EVERY 15 DAYS
     Route: 042
  3. PREDNISONE [Suspect]
     Active Substance: PREDNISONE
     Indication: Product used for unknown indication
     Dosage: 10 MILLIGRAM
     Route: 048
  4. PREDNISONE [Suspect]
     Active Substance: PREDNISONE
     Dosage: 20 MILLIGRAM
     Route: 048
  5. PREDNISONE [Suspect]
     Active Substance: PREDNISONE
     Indication: Product used for unknown indication
     Dosage: 25 MILLIGRAM
     Route: 065
  6. ACETAMINOPHEN [Concomitant]
     Active Substance: ACETAMINOPHEN
     Indication: Premedication
     Dosage: 650.0 MILLIGRAM
     Route: 048
  7. ACETAMINOPHEN\OXYCODONE HYDROCHLORIDE [Concomitant]
     Active Substance: ACETAMINOPHEN\OXYCODONE HYDROCHLORIDE
     Route: 065
  8. ASPIRIN [Concomitant]
     Active Substance: ASPIRIN
  9. BENADRYL [Concomitant]
     Active Substance: DIPHENHYDRAMINE HYDROCHLORIDE
     Indication: Premedication
     Dosage: 50 MILLIGRAM
     Route: 048
  10. DILTIAZEM [Concomitant]
     Active Substance: DILTIAZEM
  11. DIPHENHYDRAMINE [Concomitant]
     Active Substance: DIPHENHYDRAMINE
     Dosage: 50 MILLIGRAM
     Route: 048
  12. DOCUSATE SODIUM [Concomitant]
     Active Substance: DOCUSATE SODIUM
  13. FUROSEMIDE [Concomitant]
     Active Substance: FUROSEMIDE
     Route: 065
  14. GRAVOL [Concomitant]
     Active Substance: DIMENHYDRINATE
  15. HUMALOG [Concomitant]
     Active Substance: INSULIN LISPRO
  16. METHYLPREDNISOLONE [Concomitant]
     Active Substance: METHYLPREDNISOLONE
     Indication: Premedication
     Dosage: 100.0 MILLIGRAM
     Route: 042
  17. MICARDIS [Concomitant]
     Active Substance: TELMISARTAN
     Route: 065
  18. OXYCODONE [Concomitant]
     Active Substance: OXYCODONE
  19. RANITIDINE [Concomitant]
     Active Substance: RANITIDINE
  20. SOLU-MEDROL [Concomitant]
     Active Substance: METHYLPREDNISOLONE SODIUM SUCCINATE
     Indication: Premedication
     Dosage: 100.0 MILLIGRAM
     Route: 042
  21. SYNTHROID [Concomitant]
     Active Substance: LEVOTHYROXINE SODIUM
  22. TYLENOL [Concomitant]
     Active Substance: ACETAMINOPHEN
     Indication: Premedication
     Dosage: 650 MILLIGRAM
     Route: 048

REACTIONS (28)
  - End stage renal disease [Not Recovered/Not Resolved]
  - Joint dislocation [Not Recovered/Not Resolved]
  - Joint injury [Not Recovered/Not Resolved]
  - Osteopenia [Not Recovered/Not Resolved]
  - Polymyalgia rheumatica [Not Recovered/Not Resolved]
  - Poor quality sleep [Not Recovered/Not Resolved]
  - Renal impairment [Not Recovered/Not Resolved]
  - Rheumatoid arthritis [Not Recovered/Not Resolved]
  - Spinal column injury [Not Recovered/Not Resolved]
  - Swollen joint count [Not Recovered/Not Resolved]
  - Joint swelling [Not Recovered/Not Resolved]
  - Malaise [Not Recovered/Not Resolved]
  - Swelling [Not Recovered/Not Resolved]
  - Peripheral swelling [Not Recovered/Not Resolved]
  - Erythema [Not Recovered/Not Resolved]
  - Osteoarthritis [Not Recovered/Not Resolved]
  - Arthralgia [Not Recovered/Not Resolved]
  - Asthenia [Not Recovered/Not Resolved]
  - Cough [Not Recovered/Not Resolved]
  - Fatigue [Not Recovered/Not Resolved]
  - Pain [Not Recovered/Not Resolved]
  - Sinusitis [Not Recovered/Not Resolved]
  - Viral infection [Not Recovered/Not Resolved]
  - Herpes zoster [Not Recovered/Not Resolved]
  - Pneumonia [Not Recovered/Not Resolved]
  - Palpitations [Not Recovered/Not Resolved]
  - Off label use [Not Recovered/Not Resolved]
  - Off label use [Unknown]
